FAERS Safety Report 19994467 (Version 2)
Quarter: 2023Q1

REPORT INFORMATION
  Report Type: Report from Study
  Country: BR (occurrence: BR)
  Receive Date: 20211026
  Receipt Date: 20230216
  Transmission Date: 20230418
  Serious: Yes (Other)
  Sender: FDA-Public Use
  Company Number: BR-BRISTOL-MYERS SQUIBB COMPANY-BMS-2021-110826

PATIENT
  Age: 59 Year
  Sex: Female

DRUGS (1)
  1. ELIQUIS [Suspect]
     Active Substance: APIXABAN
     Indication: Cerebrovascular accident prophylaxis

REACTIONS (3)
  - Blindness unilateral [Unknown]
  - Eye haemorrhage [Unknown]
  - Tooth disorder [Unknown]

NARRATIVE: CASE EVENT DATE: 20210720
